FAERS Safety Report 5380052-5 (Version None)
Quarter: 2007Q3

REPORT INFORMATION
  Report Type: 
  Country: None (occurrence: None)
  Receive Date: 20070706
  Receipt Date: 20070702
  Transmission Date: 20080115
  Serious: Yes (Hospitalization)
  Sender: FDA-Public Use
  Company Number: JP-AVENTIS-200711416JP

PATIENT
  Age: 51 Year
  Sex: Female
  Weight: 46 kg

DRUGS (3)
  1. ALLEGRA [Suspect]
     Indication: ECZEMA
     Route: 048
     Dates: start: 20070507, end: 20070515
  2. RINDERON                           /00008501/ [Concomitant]
     Indication: ECZEMA
     Route: 048
     Dates: start: 20070507, end: 20070515
  3. HIRUDOID                           /00723701/ [Concomitant]
     Indication: ECZEMA
     Route: 003
     Dates: start: 20070507, end: 20070515

REACTIONS (5)
  - C-REACTIVE PROTEIN INCREASED [None]
  - HEPATIC FUNCTION ABNORMAL [None]
  - HEPATOCELLULAR DAMAGE [None]
  - PYREXIA [None]
  - WHITE BLOOD CELL COUNT INCREASED [None]
